FAERS Safety Report 7674640-0 (Version None)
Quarter: 2011Q3

REPORT INFORMATION
  Report Type: 
  Country: None (occurrence: None)
  Receive Date: 20110810
  Receipt Date: 20110801
  Transmission Date: 20111222
  Serious: Yes (Death, Hospitalization)
  Sender: FDA-Public Use
  Company Number: US-ROCHE-787943

PATIENT
  Age: 70 Year
  Sex: Female
  Weight: 50.8 kg

DRUGS (8)
  1. ONDANSETRON [Concomitant]
  2. METOCLOPRAMIDE [Concomitant]
  3. BEVACIZUMAB [Suspect]
     Indication: ENDOMETRIAL CANCER
     Dosage: OVER 30-90 MINUTES ON DAY 1 X DAY 6.
     Route: 042
     Dates: start: 20110517
  4. IXABEPILONE [Suspect]
     Indication: ENDOMETRIAL CANCER
     Dosage: OVER ONE HOUR.
     Route: 042
     Dates: start: 20110517
  5. CARBOPLATIN [Suspect]
     Indication: ENDOMETRIAL CANCER
     Dosage: AUC= 5 OVER 30 MIN ON DAY 1 X 6 CYCLES;
     Route: 065
     Dates: start: 20110517
  6. METOPROLOL TARTRATE [Concomitant]
  7. ALBUTEROL SULFATE AUTOHALER [Concomitant]
  8. METHIMAZOLE [Concomitant]

REACTIONS (4)
  - RESPIRATORY FAILURE [None]
  - PULMONARY HAEMORRHAGE [None]
  - BRONCHIAL HAEMORRHAGE [None]
  - HAEMOPTYSIS [None]
